FAERS Safety Report 8503147-3 (Version None)
Quarter: 2012Q2

REPORT INFORMATION
  Report Type: 
  Country: None (occurrence: None)
  Receive Date: 20120629
  Receipt Date: 20120619
  Transmission Date: 20120825
  Serious: Yes (Disabling, Other)
  Sender: FDA-Public Use
  Company Number: ACO_30777_2012

PATIENT
  Age: 58 Year
  Sex: Female
  Weight: 55.8 kg

DRUGS (9)
  1. NORVASC [Concomitant]
  2. SONATA (CARISOPRODOL) [Concomitant]
  3. CHLORTHALIDONE [Concomitant]
  4. LEXAPRO [Concomitant]
  5. TOPROL-XL [Concomitant]
  6. PROVIGIL [Concomitant]
  7. AVONEX [Concomitant]
  8. AMPYRA [Suspect]
     Indication: MULTIPLE SCLEROSIS
     Dosage: 10 MG, BID, ORAL
     Route: 048
     Dates: start: 20120514
  9. LISINOPRIL [Concomitant]

REACTIONS (6)
  - DECREASED APPETITE [None]
  - FLUID INTAKE REDUCED [None]
  - WEIGHT DECREASED [None]
  - DEHYDRATION [None]
  - DIZZINESS [None]
  - ABASIA [None]
